FAERS Safety Report 13248091 (Version 3)
Quarter: 2017Q3

REPORT INFORMATION
  Report Type: Report from Study
  Country: None (occurrence: CO)
  Receive Date: 20170217
  Receipt Date: 20170815
  Transmission Date: 20171127
  Serious: Yes (Other)
  Sender: FDA-Public Use
  Company Number: CO-ABBVIE-17P-036-1877635-00

PATIENT
  Age: 64 Year
  Sex: Male
  Weight: 76 kg

DRUGS (1)
  1. HUMIRA [Suspect]
     Active Substance: ADALIMUMAB
     Indication: RHEUMATOID ARTHRITIS
     Route: 058
     Dates: start: 20091118, end: 20170118

REACTIONS (5)
  - Tooth disorder [Recovering/Resolving]
  - Dental implantation [Recovering/Resolving]
  - Dental prosthesis placement [Unknown]
  - Tooth loss [Recovering/Resolving]
  - Tooth extraction [Recovering/Resolving]

NARRATIVE: CASE EVENT DATE: 20170207
